FAERS Safety Report 4874944-0 (Version None)
Quarter: 2006Q1

REPORT INFORMATION
  Report Type: 
  Country: None (occurrence: None)
  Receive Date: 20060104
  Receipt Date: 20051222
  Transmission Date: 20060701
  Serious: Yes (Other)
  Sender: FDA-Public Use
  Company Number: 2005139245

PATIENT
  Age: 50 Year
  Sex: Female
  Weight: 48 kg

DRUGS (37)
  1. SINEQUAN [Suspect]
     Indication: ANXIETY
     Dosage: ORAL
     Route: 048
     Dates: start: 20020815, end: 20050113
  2. SINEQUAN [Suspect]
     Indication: DEPRESSION
     Dosage: ORAL
     Route: 048
     Dates: start: 20020815, end: 20050113
  3. VENLAFAXINE (VENLAFAXINE) [Concomitant]
  4. CLIMAGEST (ESTRADIOL VALERATE, NORETHISTERONE) [Concomitant]
  5. LANSOPRAZOLE [Concomitant]
  6. DOTHIEPIN HYDROCHLORIDE (DOSULEPIN HYDROCHLORIDE) [Concomitant]
  7. DIAZEPAM [Concomitant]
  8. DESLORATADINE (DESLORATADINE) [Concomitant]
  9. BETNESOL (BETAMETHASONE SODIUM PHOSPHATE) [Concomitant]
  10. IBUPROFEN [Concomitant]
  11. PROZAC [Concomitant]
  12. MAXOLON [Concomitant]
  13. AMOXICILLIN [Concomitant]
  14. TRANSVASIN (BENZOCAINE, ETHYL NICOTINATE, HEXYL NICOTINATE, THURFYL SA [Concomitant]
  15. OTOMIZE (DEXAMETHASONE, NEOMYCIN SULFATE) [Concomitant]
  16. LANSOPRAZOLE [Concomitant]
  17. CETIRIZINE HCL [Concomitant]
  18. NEOCLARITYN (DESLORATADINE) [Concomitant]
  19. ACETAMINOPHEN W/ CODEINE [Concomitant]
  20. MONTELUKAST SODIUM (MONTELUKAST SODIUM) [Concomitant]
  21. CHLORPHENIRAMINE MALEATE [Concomitant]
  22. DIPHENYHYDRAMINE HYDROCHLORIDE (DIPHENHYDRAMINE HYDROCHLORIDE) [Concomitant]
  23. ZOPICLONE (ZOPICLONE) [Concomitant]
  24. ESOMEPRAZOLE (ESOMEPRAZOLE) [Concomitant]
  25. GAVISCON [Concomitant]
  26. ZANTAC [Concomitant]
  27. PEPTAC (CALCIUM CARBONAE, SODIUM ALGINATE, SODIUM BICARBONATE) [Concomitant]
  28. TEMAZRPAM (TEMAZEPAM) [Concomitant]
  29. METOCLOPRAMINE HYDROCHLORIDE (METOCLOPRAMINE HYDROCHLORIDE) [Concomitant]
  30. OMEPRAZOLE [Concomitant]
  31. STILNOCT (ZOLPIDEM TARTRATE) [Concomitant]
  32. NYSTATIN [Concomitant]
  33. CYCLIZINE (CYCLIZINE) [Concomitant]
  34. ALL OTHER THERAPEUTIC PRODUCTS (ALL OTHER THERAPEUTIC PRODUCTS) [Concomitant]
  35. SERTRALINE HCL [Concomitant]
  36. PREDNISOLONE [Concomitant]
  37. PROCHLORPERAZINE MALEATE (PROCHLORPERAZINE MALEATE) [Concomitant]

REACTIONS (19)
  - ABDOMINAL DISCOMFORT [None]
  - ABDOMINAL PAIN UPPER [None]
  - DIARRHOEA [None]
  - DRUG HYPERSENSITIVITY [None]
  - DRY MOUTH [None]
  - DYSPHAGIA [None]
  - FACIAL PAIN [None]
  - GASTRIC ULCER [None]
  - GASTRITIS [None]
  - HEADACHE [None]
  - LARYNGOSPASM [None]
  - RHINALGIA [None]
  - SENSATION OF PRESSURE [None]
  - SLEEP DISORDER [None]
  - TONGUE COATED [None]
  - TONGUE DISCOLOURATION [None]
  - TREMOR [None]
  - WEIGHT DECREASED [None]
  - WEIGHT GAIN POOR [None]
